FAERS Safety Report 7792471-8 (Version None)
Quarter: 2011Q3

REPORT INFORMATION
  Report Type: 
  Country: None (occurrence: None)
  Receive Date: 20110930
  Receipt Date: 20110930
  Transmission Date: 20111222
  Serious: Yes (Other)
  Sender: FDA-Public Use
  Company Number: None

PATIENT
  Age: 71 Year
  Sex: Female
  Weight: 63.05 kg

DRUGS (1)
  1. ALENDRONATE SODIUM [Suspect]
     Indication: OSTEOPENIA
     Dosage: 70MG 1/WK ORAL
     Route: 048

REACTIONS (3)
  - THROAT IRRITATION [None]
  - FOREIGN BODY [None]
  - OROPHARYNGEAL BLISTERING [None]
